FAERS Safety Report 12950267 (Version 5)
Quarter: 2017Q1

REPORT INFORMATION
  Report Type: Spontaneous
  Country: US (occurrence: US)
  Receive Date: 20161116
  Receipt Date: 20170227
  Transmission Date: 20170428
  Serious: Yes (Death)
  Sender: FDA-Public Use
  Company Number: US-CELGENEUS-USA-2016085336

PATIENT
  Age: 64 Year
  Sex: Male

DRUGS (2)
  1. THALOMID [Suspect]
     Active Substance: THALIDOMIDE
     Dosage: 50 MILLIGRAM
     Route: 048
     Dates: start: 201605
  2. THALOMID [Suspect]
     Active Substance: THALIDOMIDE
     Indication: MENINGIOMA MALIGNANT
     Dosage: 50 MILLIGRAM
     Route: 048
     Dates: start: 201505

REACTIONS (2)
  - Dyspnoea [Fatal]
  - Meningioma malignant [Fatal]

NARRATIVE: CASE EVENT DATE: 20160914
